FAERS Safety Report 11061868 (Version 2)
Quarter: 2015Q2

REPORT INFORMATION
  Report Type: Spontaneous
  Country: US (occurrence: US)
  Receive Date: 20150424
  Receipt Date: 20150504
  Transmission Date: 20150821
  Serious: No
  Sender: FDA-Public Use
  Company Number: US-BIOGENIDEC-2015BI053544

PATIENT
  Age: 36 Year
  Sex: Female

DRUGS (4)
  1. BACLOFEN. [Concomitant]
     Active Substance: BACLOFEN
  2. CALCIUM CITRATE + MAGNESIUM SULFATE [Concomitant]
  3. TECFIDERA [Suspect]
     Active Substance: DIMETHYL FUMARATE
     Indication: MULTIPLE SCLEROSIS
     Route: 048
     Dates: start: 20150327
  4. POTASSIUM [Concomitant]
     Active Substance: POTASSIUM

REACTIONS (4)
  - Feeling hot [Not Recovered/Not Resolved]
  - Urinary tract infection [Unknown]
  - Blood potassium decreased [Unknown]
  - Flushing [Unknown]

NARRATIVE: CASE EVENT DATE: 201503
